FAERS Safety Report 5467856-5 (Version None)
Quarter: 2007Q3

REPORT INFORMATION
  Report Type: 
  Country: None (occurrence: None)
  Receive Date: 20070926
  Receipt Date: 20070918
  Transmission Date: 20080115
  Serious: No
  Sender: FDA-Public Use
  Company Number: US-ELI_LILLY_AND_COMPANY-US200709003786

PATIENT
  Age: 72 Year
  Sex: Male

DRUGS (7)
  1. ZYPREXA [Suspect]
     Indication: OBSESSIVE-COMPULSIVE DISORDER
     Dosage: 10 MG, UNK
     Dates: start: 20060101
  2. ZYPREXA [Suspect]
     Dosage: 7.5 MG, UNK
  3. ZYPREXA [Suspect]
     Dosage: 5 MG, UNK
  4. ATIVAN [Concomitant]
     Dosage: 2 MG, DAILY (1/D)
  5. NAMENDA [Concomitant]
     Dosage: 10 MG, UNK
  6. LEXAPRO [Concomitant]
     Dosage: 25 MG, UNK
  7. LIPITOR [Concomitant]
     Dosage: 20 MG, UNK

REACTIONS (1)
  - HAEMATURIA [None]
